FAERS Safety Report 12210531 (Version 1)
Quarter: 2016Q1

REPORT INFORMATION
  Report Type: Spontaneous
  Country: US (occurrence: US)
  Receive Date: 20160325
  Receipt Date: 20160325
  Transmission Date: 20160526
  Serious: Yes (Other)
  Sender: FDA-Public Use
  Company Number: US-SA-2016SA023115

PATIENT
  Age: 50 Year
  Sex: Male

DRUGS (1)
  1. FABRAZYME [Suspect]
     Active Substance: AGALSIDASE BETA
     Route: 041
     Dates: start: 201103

REACTIONS (6)
  - Cerebrovascular accident [Unknown]
  - Hemiplegia [Unknown]
  - Blood immunoglobulin E increased [Unknown]
  - Myocardial infarction [Unknown]
  - Nausea [Unknown]
  - Musculoskeletal pain [Unknown]

NARRATIVE: CASE EVENT DATE: 201602
